FAERS Safety Report 7522175-8 (Version None)
Quarter: 2011Q2

REPORT INFORMATION
  Report Type: 
  Country: None (occurrence: None)
  Receive Date: 20110603
  Receipt Date: 20110331
  Transmission Date: 20111010
  Serious: No
  Sender: FDA-Public Use
  Company Number: US-BAYER-2011-028965

PATIENT
  Age: 22 Year
  Sex: Female

DRUGS (1)
  1. ALEVE (CAPLET) [Suspect]
     Dosage: 1760 MG, QD
     Route: 048
     Dates: start: 20110331

REACTIONS (1)
  - NO ADVERSE EVENT [None]
